FAERS Safety Report 13961515 (Version 1)
Quarter: 2017Q3

REPORT INFORMATION
  Report Type: Spontaneous
  Country: BR (occurrence: BR)
  Receive Date: 20170912
  Receipt Date: 20170912
  Transmission Date: 20171128
  Serious: Yes (Other)
  Sender: FDA-Public Use
  Company Number: BR-CELGENEUS-BRA-20170809659

PATIENT

DRUGS (1)
  1. THALOMID [Suspect]
     Active Substance: THALIDOMIDE
     Indication: HIV INFECTION
     Dosage: 200 MILLIGRAM
     Route: 048

REACTIONS (14)
  - Papilloma viral infection [Unknown]
  - Hypersensitivity [Unknown]
  - Diarrhoea [Unknown]
  - Dry skin [Unknown]
  - Syphilis [Unknown]
  - Gastroenteritis [Unknown]
  - Somnolence [Unknown]
  - Dry mouth [Unknown]
  - Sinusitis [Unknown]
  - Furuncle [Unknown]
  - Blood HIV RNA increased [Unknown]
  - Nasopharyngitis [Unknown]
  - Constipation [Unknown]
  - Rash [Unknown]
